FAERS Safety Report 17856914 (Version 1)
Quarter: 2020Q2

REPORT INFORMATION
  Report Type: Spontaneous
  Country: BR (occurrence: BR)
  Receive Date: 20200603
  Receipt Date: 20200603
  Transmission Date: 20200714
  Serious: Yes (Other)
  Sender: FDA-Public Use
  Company Number: NVSC2020BR153510

PATIENT
  Age: 12 Year
  Sex: Female

DRUGS (2)
  1. RITALINA [Suspect]
     Active Substance: METHYLPHENIDATE HYDROCHLORIDE
     Indication: PRODUCT USED FOR UNKNOWN INDICATION
     Dosage: QD ((10 MG, 30 CP, HALF TABLET IN AFTERNOON)
     Route: 065
  2. RITALINA LA [Suspect]
     Active Substance: METHYLPHENIDATE HYDROCHLORIDE
     Indication: PRODUCT USED FOR UNKNOWN INDICATION
     Dosage: 1 DF, QD (10 MG, 30 CS IN MRNG)
     Route: 065

REACTIONS (8)
  - Wrong technique in product usage process [Unknown]
  - Dermatitis [Unknown]
  - Epilepsy [Unknown]
  - Blister [Unknown]
  - Disturbance in attention [Unknown]
  - Expired product administered [Unknown]
  - Nasal dryness [Unknown]
  - Attention deficit hyperactivity disorder [Unknown]

NARRATIVE: CASE EVENT DATE: 201912
